FAERS Safety Report 17709494 (Version 1)
Quarter: 2020Q2

REPORT INFORMATION
  Report Type: Report from Study
  Country: None (occurrence: AR)
  Receive Date: 20200427
  Receipt Date: 20200427
  Transmission Date: 20200714
  Serious: Yes (Hospitalization)
  Sender: FDA-Public Use
  Company Number: AR-ABBVIE-20K-007-3378867-00

PATIENT
  Age: 76 Year
  Sex: Female

DRUGS (2)
  1. VENCLEXTA [Suspect]
     Active Substance: VENETOCLAX
     Indication: CHRONIC LYMPHOCYTIC LEUKAEMIA
     Dosage: 400 MG PER DAY FOR 30 DAYS
     Route: 048
     Dates: start: 20180910
  2. VENCLEXTA [Suspect]
     Active Substance: VENETOCLAX
     Dosage: 400 MG PER DAY FOR 30 DAYS
     Route: 048
     Dates: start: 20200420

REACTIONS (2)
  - Discomfort [Unknown]
  - Kidney infection [Recovering/Resolving]

NARRATIVE: CASE EVENT DATE: 20200417
